FAERS Safety Report 8492750 (Version 4)
Quarter: 2012Q4

REPORT INFORMATION
  Report Type: Report from Study
  Country: DE (occurrence: DE)
  Receive Date: 20120403
  Receipt Date: 20121022
  Transmission Date: 20130627
  Serious: Yes (Hospitalization)
  Sender: FDA-Public Use
  Company Number: DE-ROCHE-1053007

PATIENT
  Age: 38 Year
  Sex: Male
  Weight: 142 kg

DRUGS (4)
  1. TOCILIZUMAB [Suspect]
     Indication: RHEUMATOID ARTHRITIS
     Route: 042
     Dates: start: 20111214, end: 20120326
  2. TOCILIZUMAB [Suspect]
     Route: 042
     Dates: start: 20120111
  3. TOCILIZUMAB [Suspect]
     Route: 042
     Dates: start: 20120227
  4. LEFLUNOMID [Suspect]
     Indication: RHEUMATOID ARTHRITIS
     Route: 065
     Dates: start: 201103, end: 201203

REACTIONS (2)
  - Cardiac failure [Not Recovered/Not Resolved]
  - Pneumonia [Recovering/Resolving]
